FAERS Safety Report 12930870 (Version 1)
Quarter: 2016Q4

REPORT INFORMATION
  Report Type: Report from Study
  Country: US (occurrence: US)
  Receive Date: 20161110
  Receipt Date: 20161110
  Transmission Date: 20170207
  Serious: Yes (Hospitalization)
  Sender: FDA-Public Use
  Company Number: US-ANTARES PHARMA, INC.-2016-LIT-ME-0316

PATIENT
  Age: 32 Year
  Sex: Female

DRUGS (1)
  1. METHOTREXATE. [Suspect]
     Active Substance: METHOTREXATE
     Indication: CROHN^S DISEASE

REACTIONS (4)
  - Fistula [Recovered/Resolved]
  - Anal abscess [Recovered/Resolved]
  - Off label use [Recovered/Resolved]
  - Cellulitis [Unknown]
